FAERS Safety Report 11054591 (Version 1)
Quarter: 2015Q2

REPORT INFORMATION
  Report Type: Spontaneous
  Country: US (occurrence: None)
  Receive Date: 20150420
  Receipt Date: 20150420
  Transmission Date: 20150821
  Serious: Yes (Hospitalization, Other)
  Sender: FDA-Public Use
  Company Number: ADR-2015-00737

PATIENT
  Age: 59 Year
  Sex: Male

DRUGS (2)
  1. MEDICATIONS [Suspect]
     Active Substance: UNSPECIFIED INGREDIENT
  2. BACLOFEN INTRATHECAL [Suspect]
     Active Substance: BACLOFEN
     Indication: MUSCLE SPASTICITY

REACTIONS (6)
  - Incorrect dose administered [None]
  - Feeding tube complication [None]
  - Contusion [None]
  - Loss of consciousness [None]
  - Seizure [None]
  - Cerebrovascular accident [None]

NARRATIVE: CASE EVENT DATE: 20150329
